FAERS Safety Report 14755629 (Version 1)
Quarter: 2018Q2

REPORT INFORMATION
  Report Type: Spontaneous
  Country: FR (occurrence: FR)
  Receive Date: 20180413
  Receipt Date: 20180413
  Transmission Date: 20180711
  Serious: Yes (Congenital Anomaly, Other)
  Sender: FDA-Public Use
  Company Number: FR-MERCK KGAA-2045727

PATIENT
  Age: 45 Year
  Sex: Female
  Weight: 41 kg

DRUGS (2)
  1. NOVOTHYROX [Suspect]
     Active Substance: LEVOTHYROXINE SODIUM
     Indication: THYROIDECTOMY
     Route: 048
     Dates: start: 201703, end: 201709
  2. NOVOTHYROX [Suspect]
     Active Substance: LEVOTHYROXINE SODIUM
     Route: 048
     Dates: start: 20170911, end: 20171006

REACTIONS (6)
  - Somnolence [Recovered/Resolved]
  - Fatigue [Recovered/Resolved]
  - Blood thyroid stimulating hormone [Recovered/Resolved]
  - Sleep disorder [Recovered/Resolved]
  - Abnormal loss of weight [Recovered/Resolved]
  - Muscle spasms [Recovered/Resolved]

NARRATIVE: CASE EVENT DATE: 201703
